FAERS Safety Report 9967864 (Version 1)
Quarter: 2014Q1

REPORT INFORMATION
  Report Type: Spontaneous
  Country: US (occurrence: US)
  Receive Date: 20140306
  Receipt Date: 20140306
  Transmission Date: 20141002
  Serious: No
  Sender: FDA-Public Use
  Company Number: US-ABBVIE-13P-163-1147439-00

PATIENT
  Sex: Female
  Weight: 54.48 kg

DRUGS (8)
  1. HUMIRA [Suspect]
     Indication: CROHN^S DISEASE
     Dates: start: 2011, end: 2011
  2. HUMIRA [Suspect]
     Dates: start: 2012, end: 2012
  3. HUMIRA [Suspect]
     Dates: start: 2012, end: 201210
  4. HUMIRA [Suspect]
     Dates: start: 201304
  5. ASACOL [Suspect]
     Indication: CROHN^S DISEASE
     Dates: end: 2013
  6. ASACOL [Suspect]
     Dates: start: 2013
  7. WELLBUTRIN [Concomitant]
     Indication: DEPRESSION
  8. PRILOSEC [Concomitant]
     Indication: DYSPEPSIA

REACTIONS (6)
  - Vitamin B12 deficiency [Recovering/Resolving]
  - Cheilitis [Not Recovered/Not Resolved]
  - Back pain [Not Recovered/Not Resolved]
  - Lip swelling [Not Recovered/Not Resolved]
  - Injection site swelling [Not Recovered/Not Resolved]
  - Rash [Not Recovered/Not Resolved]
